FAERS Safety Report 8187458-X (Version None)
Quarter: 2012Q1

REPORT INFORMATION
  Report Type: 
  Country: None (occurrence: None)
  Receive Date: 20120306
  Receipt Date: 20120228
  Transmission Date: 20120608
  Serious: Yes (Hospitalization)
  Sender: FDA-Public Use
  Company Number: GB-PFIZER INC-2012053244

PATIENT
  Age: 71 Year
  Sex: Male
  Weight: 78 kg

DRUGS (1)
  1. LINEZOLID [Suspect]
     Indication: STAPHYLOCOCCAL INFECTION
     Dosage: 600 MG, 2X/DAY
     Route: 048
     Dates: start: 20120113, end: 20120208

REACTIONS (8)
  - DRY MOUTH [None]
  - MUCOSAL ULCERATION [None]
  - HYPOPHAGIA [None]
  - ORAL PAIN [None]
  - TONGUE ULCERATION [None]
  - MUCOSAL INFLAMMATION [None]
  - DEHYDRATION [None]
  - HYPOGLYCAEMIA [None]
